FAERS Safety Report 23162243 (Version 1)
Quarter: 2023Q4

REPORT INFORMATION
  Report Type: Spontaneous
  Country: US (occurrence: US)
  Receive Date: 20231109
  Receipt Date: 20231109
  Transmission Date: 20240110
  Serious: Yes (Hospitalization, Other)
  Sender: FDA-Public Use
  Company Number: US-SANDOZ-SDZ2023US049918

PATIENT
  Age: 14 Year
  Sex: Female

DRUGS (6)
  1. AMANTADINE HYDROCHLORIDE [Suspect]
     Active Substance: AMANTADINE HYDROCHLORIDE
     Indication: Autism spectrum disorder
     Dosage: 100 MG, BID
     Route: 065
  2. BUPROPION HYDROCHLORIDE [Suspect]
     Active Substance: BUPROPION HYDROCHLORIDE
     Indication: Autism spectrum disorder
     Dosage: 150 MG, QD
     Route: 065
  3. CLONIDINE [Concomitant]
     Active Substance: CLONIDINE
     Indication: Autism spectrum disorder
     Dosage: 0.2 MG AT BED TIME
     Route: 065
  4. HALOPERIDOL [Concomitant]
     Active Substance: HALOPERIDOL
     Indication: Serotonin syndrome
     Dosage: UNK
     Route: 065
  5. LORAZEPAM [Concomitant]
     Active Substance: LORAZEPAM
     Indication: Serotonin syndrome
     Dosage: 7.5 MG
     Route: 065
  6. TOPIRAMATE [Concomitant]
     Active Substance: TOPIRAMATE
     Indication: Autism spectrum disorder
     Dosage: 150 MG AT BED TIME
     Route: 065

REACTIONS (3)
  - Neurotoxicity [Recovered/Resolved]
  - Psychiatric symptom [Recovered/Resolved]
  - Drug interaction [Unknown]
